FAERS Safety Report 11285742 (Version 1)
Quarter: 2015Q3

REPORT INFORMATION
  Report Type: Spontaneous
  Country: AT (occurrence: AT)
  Receive Date: 20150721
  Receipt Date: 20150721
  Transmission Date: 20151125
  Serious: Yes (Hospitalization)
  Sender: FDA-Public Use
  Company Number: AT-SUN PHARMACEUTICAL INDUSTRIES LTD-2015RR-100557

PATIENT

DRUGS (4)
  1. RISPERIDONE. [Suspect]
     Active Substance: RISPERIDONE
     Indication: SCHIZOPHRENIA
     Route: 065
  2. AMISULPRIDE [Suspect]
     Active Substance: AMISULPRIDE
     Indication: SCHIZOPHRENIA
     Dosage: 200 MG, FOR TWO YEARS, HE HAS BEEN PRESENTING WEEKLY
     Route: 065
  3. VALPROIC ACID. [Suspect]
     Active Substance: VALPROIC ACID
     Indication: SCHIZOPHRENIA
     Route: 065
  4. CLONAZEPAM. [Suspect]
     Active Substance: CLONAZEPAM
     Indication: SCHIZOPHRENIA
     Route: 065

REACTIONS (6)
  - Feeling jittery [Recovered/Resolved]
  - Decreased eye contact [Recovered/Resolved]
  - Urinary incontinence [Recovered/Resolved]
  - Faecal incontinence [Recovered/Resolved]
  - Compulsive sexual behaviour [Recovered/Resolved]
  - Aggression [Recovered/Resolved]
